FAERS Safety Report 6570018-1 (Version None)
Quarter: 2010Q1

REPORT INFORMATION
  Report Type: 
  Country: None (occurrence: None)
  Receive Date: 20100204
  Receipt Date: 20100128
  Transmission Date: 20100710
  Serious: Yes (Other)
  Sender: FDA-Public Use
  Company Number: US-BAYER-201012729NA

PATIENT
  Sex: Female
  Weight: 54 kg

DRUGS (6)
  1. MAGNEVIST [Suspect]
     Indication: HEADACHE
     Dosage: AS USED: 20 ML
  2. ZOLMITRIPTAN [Concomitant]
  3. NAPROXEN [Concomitant]
  4. OMEPRAZOLE [Concomitant]
  5. TOPIRAMATE [Concomitant]
  6. ACYCLOVIR [Concomitant]

REACTIONS (6)
  - HYPERSENSITIVITY [None]
  - LIP SWELLING [None]
  - ORAL PRURITUS [None]
  - SWELLING FACE [None]
  - SWOLLEN TONGUE [None]
  - TONGUE DISORDER [None]
